FAERS Safety Report 6860029-0 (Version None)
Quarter: 2010Q3

REPORT INFORMATION
  Report Type: 
  Country: None (occurrence: None)
  Receive Date: 20100720
  Receipt Date: 20100709
  Transmission Date: 20110219
  Serious: Yes (Other)
  Sender: FDA-Public Use
  Company Number: US-WYE-H16070310

PATIENT
  Age: 47 Year
  Sex: Female
  Weight: 70.82 kg

DRUGS (5)
  1. ADVIL LIQUI-GELS [Suspect]
     Indication: ANALGESIC THERAPY
     Dosage: UNKNOWN
     Route: 048
  2. ADVIL LIQUI-GELS [Suspect]
     Route: 048
     Dates: start: 20100707, end: 20100708
  3. FLONASE [Concomitant]
     Dosage: UNKNOWN
     Route: 065
  4. ESTROGEN NOS [Concomitant]
     Dosage: UNKNOWN
     Route: 062
  5. IBUPROFEN [Suspect]
     Indication: ANALGESIC THERAPY
     Dosage: 800 MG (FREQUENCY UNKNOWN)
     Route: 048
     Dates: start: 20100701, end: 20100701

REACTIONS (4)
  - HYPERSENSITIVITY [None]
  - JOINT SWELLING [None]
  - PRODUCT QUALITY ISSUE [None]
  - RASH [None]
